FAERS Safety Report 10495674 (Version 2)
Quarter: 2014Q4

REPORT INFORMATION
  Report Type: Spontaneous
  Country: US (occurrence: US)
  Receive Date: 20141003
  Receipt Date: 20141009
  Transmission Date: 20150528
  Serious: Yes (Death, Hospitalization, Other)
  Sender: FDA-Public Use
  Company Number: US-BAXTER-2014BAX058358

PATIENT
  Sex: Male

DRUGS (1)
  1. DIANEAL LOW CALCIUM PERITONEAL DIALYSIS SOLUTION WITH DEXTROSE [Suspect]
     Active Substance: CALCIUM CHLORIDE\DEXTROSE\MAGNESIUM CHLORIDE\SODIUM CHLORIDE\SODIUM LACTATE
     Indication: PERITONEAL DIALYSIS
     Route: 033

REACTIONS (15)
  - Cardiac arrest [Fatal]
  - Chronic kidney disease [Fatal]
  - Respiratory failure [Fatal]
  - Hypotension [Fatal]
  - Discomfort [Unknown]
  - Aortic stenosis [Fatal]
  - Acute respiratory failure [Fatal]
  - Haemorrhoids [Unknown]
  - Scleroderma [Fatal]
  - Decreased appetite [Unknown]
  - Nosocomial infection [Unknown]
  - Pulmonary hypertension [Fatal]
  - Clostridium difficile infection [Unknown]
  - Cardiac disorder [Fatal]
  - Peritonitis [Recovered/Resolved]

NARRATIVE: CASE EVENT DATE: 20140826
